FAERS Safety Report 9249163 (Version 1)
Quarter: 2013Q2

REPORT INFORMATION
  Report Type: Spontaneous
  Country: GB (occurrence: GB)
  Receive Date: 20130423
  Receipt Date: 20130423
  Transmission Date: 20140414
  Serious: Yes (Other)
  Sender: FDA-Public Use
  Company Number: GB-TEVA-397736ISR

PATIENT
  Age: 62 Year
  Sex: Male
  Weight: 80 kg

DRUGS (2)
  1. ATORVASTATIN [Suspect]
     Indication: BLOOD CHOLESTEROL INCREASED
     Dosage: NOT SURE. 50MG?
     Route: 048
     Dates: start: 20120601, end: 20120901
  2. RAMIPRIL [Concomitant]

REACTIONS (2)
  - Fatigue [Recovered/Resolved]
  - Depression suicidal [Recovered/Resolved]
